FAERS Safety Report 10040752 (Version 2)
Quarter: 2014Q1

REPORT INFORMATION
  Report Type: Spontaneous
  Country: US (occurrence: US)
  Receive Date: 20140327
  Receipt Date: 20140327
  Transmission Date: 20141002
  Serious: Yes (Disabling)
  Sender: FDA-Public Use
  Company Number: US-GE HEALTHCARE MEDICAL DIAGNOSTICS-OSCN-PR-0701L-0006

PATIENT
  Age: 9 Year
  Sex: Male

DRUGS (7)
  1. OMNISCAN [Suspect]
     Indication: PRODUCT USED FOR UNKNOWN INDICATION
     Route: 042
     Dates: start: 200206, end: 200206
  2. SEVELAMER [Concomitant]
  3. EXTENDED RELEASE NIFEDIPINE [Concomitant]
  4. CALCITRIOL [Concomitant]
  5. CALCIUM CARBONATE [Concomitant]
  6. IRON [Concomitant]
  7. ERYTHROPOIETIN [Concomitant]

REACTIONS (7)
  - Nephrogenic systemic fibrosis [Not Recovered/Not Resolved]
  - Tenderness [Unknown]
  - Joint range of motion decreased [Unknown]
  - Joint contracture [Unknown]
  - Skin induration [Unknown]
  - Skin lesion [Unknown]
  - Scleral discolouration [Unknown]
